FAERS Safety Report 13698780 (Version 1)
Quarter: 2017Q2

REPORT INFORMATION
  Report Type: Spontaneous
  Country: US (occurrence: US)
  Receive Date: 20170627
  Receipt Date: 20170627
  Transmission Date: 20170830
  Serious: Yes (Disabling)
  Sender: FDA-Public Use
  Company Number: None

PATIENT
  Age: 47 Year
  Sex: Female
  Weight: 96.3 kg

DRUGS (5)
  1. LORAZEPAM. [Suspect]
     Active Substance: LORAZEPAM
     Indication: GENERALISED ANXIETY DISORDER
     Dosage: ?          OTHER STRENGTH:MG;QUANTITY:1 TABLET(S);?
     Route: 060
  2. LORAZEPAM. [Suspect]
     Active Substance: LORAZEPAM
     Indication: NECK PAIN
     Dosage: ?          OTHER STRENGTH:MG;QUANTITY:1 TABLET(S);?
     Route: 060
  3. OMEPRAZOLE. [Concomitant]
     Active Substance: OMEPRAZOLE
  4. LISINOPRIL. [Concomitant]
     Active Substance: LISINOPRIL
  5. PROPRANOLOL [Concomitant]
     Active Substance: PROPRANOLOL HYDROCHLORIDE

REACTIONS (18)
  - Drug tolerance [None]
  - Impaired work ability [None]
  - Memory impairment [None]
  - Hyperacusis [None]
  - Balance disorder [None]
  - Goitre [None]
  - Palpitations [None]
  - Myalgia [None]
  - Withdrawal syndrome [None]
  - Depression [None]
  - Spinal pain [None]
  - Lethargy [None]
  - Impaired driving ability [None]
  - Personality disorder [None]
  - Uterine cyst [None]
  - Anxiety [None]
  - Panic attack [None]
  - Fatigue [None]

NARRATIVE: CASE EVENT DATE: 20130515
